FAERS Safety Report 18064012 (Version 1)
Quarter: 2020Q3

REPORT INFORMATION
  Report Type: Spontaneous
  Country: US (occurrence: US)
  Receive Date: 20200723
  Receipt Date: 20200723
  Transmission Date: 20201103
  Serious: Yes (Hospitalization)
  Sender: FDA-Public Use
  Company Number: None

PATIENT
  Age: 75 Year
  Sex: Female

DRUGS (10)
  1. CALCIUM [Concomitant]
     Active Substance: CALCIUM
  2. VITAMIN D [Concomitant]
     Active Substance: VITAMIN D NOS
  3. SPIRIVA [Concomitant]
     Active Substance: TIOTROPIUM BROMIDE MONOHYDRATE
  4. ADCIRCA [Suspect]
     Active Substance: TADALAFIL
     Indication: PULMONARY ARTERIAL HYPERTENSION
     Route: 048
     Dates: start: 20200115
  5. DIGOXIN. [Concomitant]
     Active Substance: DIGOXIN
  6. LETARIS [Suspect]
     Active Substance: AMBRISENTAN
  7. ALBUTEROL. [Concomitant]
     Active Substance: ALBUTEROL
  8. FOLIC ACID. [Concomitant]
     Active Substance: FOLIC ACID
  9. VELETRI [Concomitant]
     Active Substance: EPOPROSTENOL
  10. LETARIS [Concomitant]
     Active Substance: AMBRISENTAN

REACTIONS (1)
  - Hospitalisation [None]
